FAERS Safety Report 7467449-4 (Version None)
Quarter: 2011Q2

REPORT INFORMATION
  Report Type: 
  Country: None (occurrence: None)
  Receive Date: 20110509
  Receipt Date: 20110503
  Transmission Date: 20111010
  Serious: Yes (Hospitalization)
  Sender: FDA-Public Use
  Company Number: GB-TEVA-280460ISR

PATIENT
  Age: 82 Year
  Sex: Male

DRUGS (1)
  1. BONIVA [Suspect]
     Indication: OSTEOPOROSIS
     Dosage: 10 MILLIGRAM;
     Route: 048
     Dates: start: 20110331, end: 20110408

REACTIONS (1)
  - RECTAL HAEMORRHAGE [None]
